FAERS Safety Report 8335585-6 (Version None)
Quarter: 2012Q2

REPORT INFORMATION
  Report Type: 
  Country: None (occurrence: None)
  Receive Date: 20120504
  Receipt Date: 20120425
  Transmission Date: 20120825
  Serious: Yes (Hospitalization)
  Sender: FDA-Public Use
  Company Number: FR-PAR PHARMACEUTICAL, INC-2012SCPR004350

PATIENT

DRUGS (2)
  1. DOXYCYCLINE [Suspect]
     Indication: ACNE
     Dosage: 100 MG, / DAY
     Route: 065
  2. DOXYCYCLINE [Suspect]
     Dosage: UNK, UNKNOWN
     Route: 065

REACTIONS (1)
  - INTERSTITIAL LUNG DISEASE [None]
